FAERS Safety Report 7086328-8 (Version None)
Quarter: 2010Q4

REPORT INFORMATION
  Report Type: 
  Country: None (occurrence: None)
  Receive Date: 20101105
  Receipt Date: 20101105
  Transmission Date: 20110411
  Serious: Yes (Death, Hospitalization)
  Sender: FDA-Public Use
  Company Number: US-ROXANE LABORATORIES, INC.-2010-RO-01339RO

PATIENT
  Sex: Female

DRUGS (8)
  1. METHADONE [Suspect]
     Indication: PAIN MANAGEMENT
  2. HYDROCODONE [Suspect]
     Indication: PAIN MANAGEMENT
  3. HYDROMORPHONE HCL [Suspect]
     Indication: PAIN MANAGEMENT
  4. LYRICA [Suspect]
     Indication: PAIN MANAGEMENT
  5. CYCLOBENZAPRAIN [Suspect]
     Indication: PAIN MANAGEMENT
  6. DIAZEPAM [Suspect]
     Indication: PAIN MANAGEMENT
  7. MORPHINE [Suspect]
     Indication: PAIN MANAGEMENT
  8. VICODIN [Suspect]
     Indication: PAIN MANAGEMENT

REACTIONS (12)
  - ANXIETY [None]
  - DELUSION [None]
  - DISORIENTATION [None]
  - DRUG INEFFECTIVE [None]
  - FALL [None]
  - HALLUCINATION [None]
  - INJURY [None]
  - PARANOIA [None]
  - SEDATION [None]
  - SOCIAL AVOIDANT BEHAVIOUR [None]
  - SOMNAMBULISM [None]
  - SUSPICIOUSNESS [None]
